FAERS Safety Report 13684820 (Version 3)
Quarter: 2018Q2

REPORT INFORMATION
  Report Type: Spontaneous
  Country: US (occurrence: US)
  Receive Date: 20170623
  Receipt Date: 20180622
  Transmission Date: 20180711
  Serious: No
  Sender: FDA-Public Use
  Company Number: US-ASTELLAS-2017US022657

PATIENT
  Sex: Female

DRUGS (2)
  1. VESICARE [Suspect]
     Active Substance: SOLIFENACIN SUCCINATE
     Indication: PRODUCT USED FOR UNKNOWN INDICATION
     Route: 048
     Dates: start: 201501
  2. VESICARE [Suspect]
     Active Substance: SOLIFENACIN SUCCINATE
     Route: 048

REACTIONS (2)
  - Dysuria [Recovered/Resolved]
  - Inappropriate schedule of drug administration [Unknown]
